FAERS Safety Report 4847078-9 (Version None)
Quarter: 2005Q4

REPORT INFORMATION
  Report Type: 
  Country: None (occurrence: None)
  Receive Date: 20051206
  Receipt Date: 20051206
  Transmission Date: 20060501
  Serious: Yes (Life-Threatening, Hospitalization)
  Sender: FDA-Public Use
  Company Number: None

PATIENT
  Age: 36 Year
  Sex: Male
  Weight: 103.4201 kg

DRUGS (1)
  1. GEODON [Suspect]
     Indication: BIPOLAR I DISORDER
     Dosage: 20 BEFORE BED PO
     Route: 048
     Dates: start: 20050901, end: 20051113

REACTIONS (5)
  - BLOOD PRESSURE DECREASED [None]
  - FEAR [None]
  - FEELING ABNORMAL [None]
  - HEART RATE DECREASED [None]
  - LOSS OF CONSCIOUSNESS [None]
